FAERS Safety Report 15165753 (Version 1)
Quarter: 2018Q3

REPORT INFORMATION
  Report Type: Spontaneous
  Country: US (occurrence: US)
  Receive Date: 20180621
  Receipt Date: 20180621
  Transmission Date: 20181010
  Serious: No
  Sender: FDA-Public Use
  Company Number: None

PATIENT
  Age: 78 Year
  Sex: Female

DRUGS (2)
  1. PENNEEDLE UF III 31GX5/16 [Concomitant]
     Active Substance: DEVICE
  2. TYMLOS [Suspect]
     Active Substance: ABALOPARATIDE
     Route: 058

REACTIONS (2)
  - Headache [None]
  - Heart rate increased [None]

NARRATIVE: CASE EVENT DATE: 20180621
